FAERS Safety Report 4977890-7 (Version None)
Quarter: 2006Q2

REPORT INFORMATION
  Report Type: 
  Country: None (occurrence: None)
  Receive Date: 20060417
  Receipt Date: 20060401
  Transmission Date: 20061013
  Serious: Yes (Other)
  Sender: FDA-Public Use
  Company Number: 2006045179

PATIENT
  Age: 51 Year
  Sex: Female
  Weight: 47.6277 kg

DRUGS (6)
  1. NEURONTIN [Suspect]
     Indication: CONVULSION
     Dosage: 2100MG (4 IN 1 D), ORAL
     Route: 048
     Dates: start: 20040101
  2. NEURONTIN [Suspect]
     Indication: NEURALGIA
     Dosage: 2100MG (4 IN 1 D), ORAL
     Route: 048
     Dates: start: 20040101
  3. PHENOBARBITAL (PHENOBARBITAL) [Concomitant]
  4. KLONOPIN [Concomitant]
  5. DURAGESIC-100 [Concomitant]
  6. PRILOSEC [Concomitant]

REACTIONS (6)
  - BREAST CANCER FEMALE [None]
  - DRUG INEFFECTIVE [None]
  - IATROGENIC INJURY [None]
  - MASTECTOMY [None]
  - NERVE INJURY [None]
  - POST PROCEDURAL COMPLICATION [None]
